FAERS Safety Report 4982607-6 (Version None)
Quarter: 2006Q2

REPORT INFORMATION
  Report Type: 
  Country: None (occurrence: None)
  Receive Date: 20060420
  Receipt Date: 20060405
  Transmission Date: 20061013
  Serious: Yes (Other)
  Sender: FDA-Public Use
  Company Number: 2006S1002996

PATIENT
  Age: 85 Year
  Sex: Female
  Weight: 90.7194 kg

DRUGS (12)
  1. FENTANYL TRANSDERMAL SYSTEM [Suspect]
     Indication: OSTEOARTHRITIS
     Dosage: 25 UG/HR; Q3D; TRANSD
     Route: 062
     Dates: start: 20060228, end: 20060323
  2. FENTANYL TRANSDERMAL SYSTEM [Suspect]
     Indication: OSTEOARTHRITIS
     Dosage: 25 UG/HR; Q3D; TRANSD
     Route: 062
     Dates: start: 20060405
  3. FENTANYL TRANSDERMAL SYSTEM [Suspect]
  4. FENTANYL TRANSDERMAL SYSTEM [Suspect]
     Indication: OSTEOARTHRITIS
     Dosage: 50 UG/HR; Q3D; TRANSD
     Route: 062
     Dates: start: 20060324, end: 20060402
  5. TRIAMTERENE AND HYDROCHLOROTHIAZIDE [Concomitant]
  6. PARACETAMOL/HYDROCODONE BITARTRATE [Concomitant]
  7. METAXALONE [Concomitant]
  8. IBUPROFEN [Concomitant]
  9. ACETAMINOPHEN [Concomitant]
  10. METFORMIN [Concomitant]
  11. ATENOLOL [Concomitant]
  12. .. [Concomitant]

REACTIONS (8)
  - CHILLS [None]
  - DRUG INEFFECTIVE [None]
  - DRUG WITHDRAWAL SYNDROME [None]
  - FATIGUE [None]
  - INADEQUATE ANALGESIA [None]
  - NAUSEA [None]
  - SOMNOLENCE [None]
  - YAWNING [None]
